FAERS Safety Report 4700914-9 (Version None)
Quarter: 2005Q2

REPORT INFORMATION
  Report Type: 
  Country: None (occurrence: None)
  Receive Date: 20050624
  Receipt Date: 20050609
  Transmission Date: 20051028
  Serious: Yes (Other)
  Sender: FDA-Public Use
  Company Number: 005067

PATIENT
  Sex: Female

DRUGS (1)
  1. DIAMOX [Suspect]
     Indication: INTRACRANIAL PRESSURE INCREASED
     Dosage: 500.00 MG, BID, ORAL
     Route: 048

REACTIONS (2)
  - DRUG EXPOSURE DURING PREGNANCY [None]
  - PREMATURE LABOUR [None]
